FAERS Safety Report 5964193-7 (Version None)
Quarter: 2008Q4

REPORT INFORMATION
  Report Type: 
  Country: None (occurrence: None)
  Receive Date: 20081121
  Receipt Date: 20081121
  Transmission Date: 20090506
  Serious: Yes (Other)
  Sender: FDA-Public Use
  Company Number: None

PATIENT
  Sex: Female
  Weight: 55.7924 kg

DRUGS (1)
  1. AMBIEN [Suspect]
     Indication: INSOMNIA
     Dosage: ONE PILL BEFORE BED, 5 NIGHTS
     Dates: start: 20080910, end: 20080915

REACTIONS (4)
  - AMNESIA [None]
  - FALL [None]
  - HEAD INJURY [None]
  - MIDDLE INSOMNIA [None]
